FAERS Safety Report 4648690-2 (Version None)
Quarter: 2005Q2

REPORT INFORMATION
  Report Type: 
  Country: None (occurrence: None)
  Receive Date: 20050427
  Receipt Date: 20050414
  Transmission Date: 20051028
  Serious: Yes (Death, Life-Threatening)
  Sender: FDA-Public Use
  Company Number: MK200502-0187-2

PATIENT
  Age: 82 Year
  Sex: Male

DRUGS (1)
  1. OPTIRAY 320 [Suspect]
     Indication: COMPUTERISED TOMOGRAM
     Dosage: 60 ML ONCE
     Dates: start: 20050215, end: 20050215

REACTIONS (8)
  - BRAIN DEATH [None]
  - BRAIN OEDEMA [None]
  - CARDIO-RESPIRATORY ARREST [None]
  - CYANOSIS [None]
  - DYSPNOEA [None]
  - HYPOXIC ENCEPHALOPATHY [None]
  - NERVOUS SYSTEM DISORDER [None]
  - PROCEDURAL COMPLICATION [None]
